FAERS Safety Report 24858704 (Version 1)
Quarter: 2025Q1

REPORT INFORMATION
  Report Type: Spontaneous
  Country: ES (occurrence: ES)
  Receive Date: 20250118
  Receipt Date: 20250118
  Transmission Date: 20250409
  Serious: Yes (Other)
  Sender: B BRAUN
  Company Number: ES-B.Braun Medical Inc.-2169292

PATIENT
  Age: 68 Year
  Sex: Female
  Weight: 98 kg

DRUGS (3)
  1. BUPIVACAINE HYDROCHLORIDE [Suspect]
     Active Substance: BUPIVACAINE HYDROCHLORIDE
     Indication: Hernia
  2. BUPIVACAINE HYDROCHLORIDE [Suspect]
     Active Substance: BUPIVACAINE HYDROCHLORIDE
     Indication: Surgery
  3. FENTANYL [Concomitant]
     Active Substance: FENTANYL

REACTIONS (1)
  - Drug ineffective [Recovered/Resolved]
